FAERS Safety Report 24786302 (Version 1)
Quarter: 2024Q4

REPORT INFORMATION
  Report Type: Spontaneous
  Country: IE (occurrence: IE)
  Receive Date: 20241229
  Receipt Date: 20241229
  Transmission Date: 20250114
  Serious: Yes (Death)
  Sender: AMGEN
  Company Number: IE-AMGEN-IRLSP2024251969

PATIENT
  Age: 28 Year
  Sex: Male

DRUGS (4)
  1. RITUXIMAB [Suspect]
     Active Substance: RITUXIMAB
     Indication: Encephalitis
     Dosage: UNK
     Route: 065
  2. TACROLIMUS [Concomitant]
     Active Substance: TACROLIMUS
  3. METHYLPREDNISOLONE [Concomitant]
     Active Substance: METHYLPREDNISOLONE
     Dosage: HIGH DOSE, 36 DAYS
     Route: 040
  4. Immunoglobulin [Concomitant]
     Route: 040

REACTIONS (3)
  - Respiratory tract infection [Fatal]
  - Drug ineffective for unapproved indication [Unknown]
  - Off label use [Unknown]
